FAERS Safety Report 4272463-6 (Version None)
Quarter: 2004Q1

REPORT INFORMATION
  Report Type: 
  Country: None (occurrence: None)
  Receive Date: 20040115
  Receipt Date: 20020516
  Transmission Date: 20041129
  Serious: Yes (Death, Hospitalization, Disabling)
  Sender: FDA-Public Use
  Company Number: WAES 0205USA02109

PATIENT
  Age: 53 Year
  Sex: Male
  Weight: 161 kg

DRUGS (7)
  1. PEPCID [Concomitant]
     Route: 048
  2. LASIX [Concomitant]
     Dates: start: 20000101, end: 20020101
  3. NEURONTIN [Concomitant]
  4. IBUPROFEN [Concomitant]
  5. ZESTRIL [Concomitant]
  6. LITHIUM CARBONATE [Concomitant]
     Indication: CLUSTER HEADACHE
  7. VIOXX [Suspect]
     Route: 048
     Dates: start: 20000201, end: 20010501

REACTIONS (47)
  - ANAEMIA [None]
  - B-CELL LYMPHOMA STAGE II [None]
  - BENIGN COLONIC POLYP [None]
  - CANCER PAIN [None]
  - CARDIAC FAILURE CONGESTIVE [None]
  - CARDIO-RESPIRATORY ARREST [None]
  - DEPRESSED LEVEL OF CONSCIOUSNESS [None]
  - DEPRESSION [None]
  - DIABETES MELLITUS NON-INSULIN-DEPENDENT [None]
  - DIVERTICULUM [None]
  - EMOTIONAL DISTRESS [None]
  - FACIAL PALSY [None]
  - FALL [None]
  - FEMUR FRACTURE [None]
  - FLANK PAIN [None]
  - FLUID RETENTION [None]
  - HAEMATURIA [None]
  - HAEMORRHAGE INTRACRANIAL [None]
  - HAEMORRHOIDS [None]
  - HEMIPARESIS [None]
  - HIP FRACTURE [None]
  - HYPERTENSION [None]
  - INFLUENZA [None]
  - INJURY [None]
  - INSOMNIA [None]
  - MARROW HYPERPLASIA [None]
  - MYELODYSPLASTIC SYNDROME [None]
  - NAUSEA [None]
  - NEOPLASM PROGRESSION [None]
  - NON-HODGKIN'S LYMPHOMA [None]
  - OESOPHAGITIS HAEMORRHAGIC [None]
  - PATHOLOGICAL FRACTURE [None]
  - PITTING OEDEMA [None]
  - PLATELET DISORDER [None]
  - PLEURAL EFFUSION [None]
  - PNEUMONIA ASPIRATION [None]
  - PULSE ABSENT [None]
  - RECTAL HAEMORRHAGE [None]
  - RECTAL POLYP [None]
  - RESPIRATORY DISTRESS [None]
  - RESPIRATORY FAILURE [None]
  - SEPTIC SHOCK [None]
  - SINUS TACHYCARDIA [None]
  - SINUSITIS [None]
  - SPLENOMEGALY [None]
  - STOMATITIS [None]
  - VOMITING [None]
